FAERS Safety Report 10274924 (Version 4)
Quarter: 2015Q1

REPORT INFORMATION
  Report Type: Report from Study
  Country: MX (occurrence: MX)
  Receive Date: 20140702
  Receipt Date: 20150216
  Transmission Date: 20150720
  Serious: Yes (Hospitalization)
  Sender: FDA-Public Use
  Company Number: MX-ROCHE-1426208

PATIENT
  Age: 31 Year
  Sex: Female
  Weight: 60 kg

DRUGS (1)
  1. ROACTEMRA [Suspect]
     Active Substance: TOCILIZUMAB
     Indication: RHEUMATOID ARTHRITIS
     Route: 042
     Dates: start: 20120101, end: 201501

REACTIONS (14)
  - Blood triglycerides increased [Unknown]
  - Meniscus injury [Recovering/Resolving]
  - Chondropathy [Not Recovered/Not Resolved]
  - Somnolence [Unknown]
  - Fall [Unknown]
  - Gastritis [Unknown]
  - Fatigue [Unknown]
  - Irritable bowel syndrome [Unknown]
  - Weight increased [Unknown]
  - Headache [Unknown]
  - Papillary thyroid cancer [Recovered/Resolved]
  - Rash [Unknown]
  - Blood cholesterol increased [Unknown]
  - Myocardial ischaemia [Unknown]

NARRATIVE: CASE EVENT DATE: 20120101
